FAERS Safety Report 5615568-7 (Version None)
Quarter: 2008Q1

REPORT INFORMATION
  Report Type: 
  Country: None (occurrence: None)
  Receive Date: 20080205
  Receipt Date: 20080205
  Transmission Date: 20080703
  Serious: Yes (Life-Threatening, Other)
  Sender: FDA-Public Use
  Company Number: None

PATIENT
  Age: 9 Year
  Sex: Male
  Weight: 29.4838 kg

DRUGS (2)
  1. FOCALIN [Suspect]
     Indication: ABNORMAL BEHAVIOUR
     Dosage: 20MG DAILY PO
     Route: 048
  2. FOCALIN [Suspect]
     Indication: EDUCATIONAL PROBLEM
     Dosage: 20MG DAILY PO
     Route: 048

REACTIONS (10)
  - ABNORMAL BEHAVIOUR [None]
  - AMNESIA [None]
  - CRYING [None]
  - DRUG WITHDRAWAL SYNDROME [None]
  - EMOTIONAL DISORDER [None]
  - INSOMNIA [None]
  - PERSONALITY CHANGE [None]
  - SELF INJURIOUS BEHAVIOUR [None]
  - SUICIDAL IDEATION [None]
  - THINKING ABNORMAL [None]
